FAERS Safety Report 8509822-9 (Version None)
Quarter: 2012Q3

REPORT INFORMATION
  Report Type: 
  Country: None (occurrence: None)
  Receive Date: 20120713
  Receipt Date: 20120706
  Transmission Date: 20120928
  Serious: Yes (Hospitalization)
  Sender: FDA-Public Use
  Company Number: HU-JNJFOC-20120410744

PATIENT
  Sex: Female
  Weight: 81 kg

DRUGS (22)
  1. GOLIMUMAB [Suspect]
     Dosage: 4-8 CAPSULES
     Route: 058
     Dates: start: 20071010, end: 20110803
  2. METHYLPREDNISOLONE [Concomitant]
     Route: 048
     Dates: start: 20051201
  3. BISOPROLOL FUMARATE [Concomitant]
     Route: 048
     Dates: start: 20051201, end: 20101201
  4. FOLIC ACID [Concomitant]
     Route: 048
     Dates: start: 20061004, end: 20120306
  5. DIVIGEL [Concomitant]
     Route: 062
     Dates: start: 20100101, end: 20120306
  6. FLUCONAZOLE [Concomitant]
     Dates: start: 20050901
  7. METFORMIN HYDROCHLORIDE [Concomitant]
     Dates: start: 20110101, end: 20120306
  8. METHOTREXATE [Concomitant]
     Dates: start: 20080618, end: 20120306
  9. LEVOTHYROXINE SODIUM [Concomitant]
     Route: 048
     Dates: start: 20110727
  10. LAVESTRA [Concomitant]
     Dates: start: 20110101
  11. INDOMETHACIN [Concomitant]
     Route: 054
     Dates: start: 20051201, end: 20120306
  12. CARVEDILOL [Concomitant]
     Route: 048
     Dates: start: 20100101, end: 20120306
  13. LEVOFLOXACIN [Concomitant]
     Dates: start: 20120220
  14. RABEPRAZOLE SODIUM [Concomitant]
     Route: 048
     Dates: start: 20051201, end: 20120306
  15. VITAMIN D [Concomitant]
     Route: 048
     Dates: start: 20100101, end: 20120306
  16. LYRICA [Concomitant]
     Dates: start: 20110101
  17. METHOTREXATE [Suspect]
     Indication: RHEUMATOID ARTHRITIS
     Dosage: 4-8 CAPSULES
     Route: 048
     Dates: start: 20061004
  18. POTASSIUM CHLORIDE [Concomitant]
     Route: 048
     Dates: start: 20051201
  19. FUROSEMIDE [Concomitant]
     Dates: start: 20120220
  20. GOLIMUMAB [Suspect]
     Indication: RHEUMATOID ARTHRITIS
     Route: 058
     Dates: start: 20110831, end: 20120215
  21. PREGABALIN [Concomitant]
     Route: 048
     Dates: start: 20110101
  22. LOSARTAN POTASSIUM [Concomitant]
     Route: 048
     Dates: start: 20111201, end: 20120306

REACTIONS (2)
  - HEPATITIS B [None]
  - HEPATIC FAILURE [None]
